FAERS Safety Report 6372094-8 (Version None)
Quarter: 2009Q3

REPORT INFORMATION
  Report Type: 
  Country: None (occurrence: None)
  Receive Date: 20090917
  Receipt Date: 20090904
  Transmission Date: 20100115
  Serious: Yes (Other)
  Sender: FDA-Public Use
  Company Number: ADR18722009

PATIENT
  Age: 31 Year
  Sex: Female

DRUGS (5)
  1. SALBUTAMOL (MFR: UNKNOWN) [Suspect]
     Indication: ASTHMA
     Dosage: INHALATION
     Route: 055
  2. AMINOPHYLLINE [Concomitant]
  3. ATROVENT (500 ?G) [Concomitant]
  4. HYDROCORTISONE [Concomitant]
  5. OXYGEN [Concomitant]

REACTIONS (16)
  - CAESAREAN SECTION [None]
  - CHEST X-RAY ABNORMAL [None]
  - DYSPNOEA [None]
  - HAEMORRHAGE [None]
  - HYPERVENTILATION [None]
  - HYPOPHAGIA [None]
  - HYPOVOLAEMIA [None]
  - METABOLIC ACIDOSIS [None]
  - POLYHYDRAMNIOS [None]
  - PREMATURE LABOUR [None]
  - RESPIRATORY FAILURE [None]
  - RESPIRATORY RATE INCREASED [None]
  - SEPSIS [None]
  - TACHYCARDIA [None]
  - UTERINE DISORDER [None]
  - WHEEZING [None]
